FAERS Safety Report 9913294 (Version 1)
Quarter: 2014Q1

REPORT INFORMATION
  Report Type: Spontaneous
  Country: US (occurrence: None)
  Receive Date: 20140218
  Receipt Date: 20140218
  Transmission Date: 20141002
  Serious: Yes (Hospitalization)
  Sender: FDA-Public Use
  Company Number: None

PATIENT
  Age: 78 Year
  Sex: Female
  Weight: 76.66 kg

DRUGS (10)
  1. ELIQUIS [Suspect]
     Indication: CEREBROVASCULAR ACCIDENT
     Route: 048
  2. ELIQUIS [Suspect]
     Indication: PROPHYLAXIS
     Route: 048
  3. ASPIRIN [Concomitant]
  4. ATORVASTATIN [Concomitant]
  5. ESTRADIOL [Concomitant]
  6. TRANSDERMAL PATCH [Concomitant]
  7. PREVACID [Concomitant]
  8. SOTALOL [Concomitant]
  9. SYNTHROID [Concomitant]
  10. TUDORZA INHALATION POWDER [Concomitant]

REACTIONS (2)
  - Haematuria [None]
  - International normalised ratio increased [None]
